FAERS Safety Report 4917752-4 (Version None)
Quarter: 2006Q1

REPORT INFORMATION
  Report Type: 
  Country: None (occurrence: None)
  Receive Date: 20060221
  Receipt Date: 20060111
  Transmission Date: 20060701
  Serious: Yes (Death, Other)
  Sender: FDA-Public Use
  Company Number: GB-BRISTOL-MYERS SQUIBB COMPANY-13251574

PATIENT
  Age: 97 Year
  Sex: Female

DRUGS (9)
  1. METFORMIN HCL [Suspect]
     Indication: DIABETES MELLITUS
     Route: 048
     Dates: start: 20030901, end: 20060103
  2. FRUSEMIDE [Suspect]
     Route: 048
  3. PERINDOPRIL [Suspect]
     Route: 048
  4. DIGITOXIN TAB [Concomitant]
     Route: 048
  5. ASPIRIN [Concomitant]
     Route: 048
  6. SIMVASTATIN [Concomitant]
  7. FERROUS SULFATE TAB [Concomitant]
     Route: 048
  8. CLOPIDOGREL BISULFATE [Concomitant]
  9. LANSOPRAZOLE [Concomitant]

REACTIONS (13)
  - ACUTE MYOCARDIAL INFARCTION [None]
  - ANOREXIA [None]
  - CARDIAC FAILURE CONGESTIVE [None]
  - DIARRHOEA [None]
  - HAEMOPTYSIS [None]
  - HYPERKALAEMIA [None]
  - LACTIC ACIDOSIS [None]
  - LOWER RESPIRATORY TRACT INFECTION [None]
  - MITRAL VALVE STENOSIS [None]
  - RENAL FAILURE ACUTE [None]
  - SEPSIS [None]
  - THERAPEUTIC AGENT TOXICITY [None]
  - THIRST DECREASED [None]
